FAERS Safety Report 8560206-7 (Version None)
Quarter: 2012Q3

REPORT INFORMATION
  Report Type: 
  Country: None (occurrence: None)
  Receive Date: 20120802
  Receipt Date: 20120719
  Transmission Date: 20120928
  Serious: Yes (Hospitalization, Other)
  Sender: FDA-Public Use
  Company Number: US-ROCHE-1090545

PATIENT
  Sex: Male

DRUGS (4)
  1. RANIBIZUMAB [Suspect]
     Indication: AGE-RELATED MACULAR DEGENERATION
     Route: 031
  2. METOPROLOL TARTRATE [Concomitant]
     Dates: start: 20120412
  3. TIKOSYN [Concomitant]
     Dates: start: 20120412
  4. AVASTIN [Suspect]
     Indication: AGE-RELATED MACULAR DEGENERATION
     Route: 031

REACTIONS (7)
  - CARDIAC DISORDER [None]
  - BLINDNESS UNILATERAL [None]
  - ATRIAL FIBRILLATION [None]
  - CARDIAC FAILURE CONGESTIVE [None]
  - RESPIRATORY DISORDER [None]
  - CARDIOMYOPATHY [None]
  - PLEURISY [None]
